FAERS Safety Report 19596832 (Version 1)
Quarter: 2021Q3

REPORT INFORMATION
  Report Type: Spontaneous
  Country: GB (occurrence: GB)
  Receive Date: 20210722
  Receipt Date: 20210722
  Transmission Date: 20211014
  Serious: Yes (Hospitalization)
  Sender: FDA-Public Use
  Company Number: GB-VERTEX PHARMACEUTICALS-2021-010945

PATIENT
  Sex: Female

DRUGS (9)
  1. CETRIZINE [Concomitant]
     Active Substance: CETIRIZINE HYDROCHLORIDE
  2. ORKAMBI [Suspect]
     Active Substance: IVACAFTOR\LUMACAFTOR
     Indication: CYSTIC FIBROSIS
     Dosage: 1 DOSAGE FORM (100 MG LUMACAFTOR/ 125 MG IVACAFTOR), BID
     Route: 048
     Dates: start: 2020
  3. COTRIMOXAZOLE [Concomitant]
     Active Substance: SULFAMETHOXAZOLE\TRIMETHOPRIM
  4. MINOCYCLINE [Concomitant]
     Active Substance: MINOCYCLINE HYDROCHLORIDE
  5. FLUTICASONE. [Concomitant]
     Active Substance: FLUTICASONE
  6. URSODEOXYCHOLIC ACID [Concomitant]
     Active Substance: URSODIOL
  7. PHYTOMENADIONE [Concomitant]
     Active Substance: PHYTONADIONE
  8. DORNASE [Concomitant]
     Active Substance: STREPTODORNASE\STREPTOKINASE
  9. AZTREONAM. [Concomitant]
     Active Substance: AZTREONAM

REACTIONS (1)
  - Infection [Unknown]

NARRATIVE: CASE EVENT DATE: 2021
